FAERS Safety Report 9338241 (Version 2)
Quarter: 2013Q2

REPORT INFORMATION
  Report Type: Spontaneous
  Country: US (occurrence: US)
  Receive Date: 20130610
  Receipt Date: 20130614
  Transmission Date: 20140414
  Serious: Yes (Death, Hospitalization)
  Sender: FDA-Public Use
  Company Number: US-GLENMARK GENERICS INC.-2013GMK005850

PATIENT
  Age: 58 Year
  Sex: Male

DRUGS (6)
  1. HYDRALAZINE HCL [Suspect]
     Indication: PRODUCT USED FOR UNKNOWN INDICATION
     Dosage: 50 MG, TID
  2. LISINOPRIL [Concomitant]
     Indication: PRODUCT USED FOR UNKNOWN INDICATION
     Dosage: UNK
  3. BUMETANIDE [Concomitant]
     Indication: PRODUCT USED FOR UNKNOWN INDICATION
     Dosage: UNK
  4. ASPIRIN [Concomitant]
     Indication: PRODUCT USED FOR UNKNOWN INDICATION
     Dosage: UNK
  5. SPIRONOLACTONE [Concomitant]
     Indication: PRODUCT USED FOR UNKNOWN INDICATION
     Dosage: UNK
  6. CARVEDILOL [Concomitant]
     Indication: PRODUCT USED FOR UNKNOWN INDICATION
     Dosage: UNK

REACTIONS (13)
  - Pulmonary renal syndrome [Fatal]
  - Haemoptysis [Fatal]
  - Dyspnoea [Fatal]
  - Pulmonary congestion [Fatal]
  - Pulmonary alveolar haemorrhage [Fatal]
  - Lung infiltration [Fatal]
  - Rales [Fatal]
  - Respiratory distress [Fatal]
  - Fatigue [Fatal]
  - Asthenia [Fatal]
  - Arthralgia [Fatal]
  - Renal impairment [Fatal]
  - Anti-neutrophil cytoplasmic antibody positive vasculitis [Fatal]
